FAERS Safety Report 10557809 (Version 1)
Quarter: 2014Q4

REPORT INFORMATION
  Report Type: Spontaneous
  Country: GB (occurrence: None)
  Receive Date: 20141029
  Receipt Date: 20141029
  Transmission Date: 20150529
  Serious: Yes (Other)
  Sender: FDA-Public Use
  Company Number: 20142229

PATIENT
  Sex: Female

DRUGS (1)
  1. METOJECT (METHOTREXATE) [Suspect]
     Active Substance: METHOTREXATE SODIUM

REACTIONS (1)
  - Breast cancer recurrent [None]
